FAERS Safety Report 7486466-1 (Version None)
Quarter: 2011Q2

REPORT INFORMATION
  Report Type: 
  Country: None (occurrence: None)
  Receive Date: 20110516
  Receipt Date: 20110516
  Transmission Date: 20111010
  Serious: Yes (Disabling)
  Sender: FDA-Public Use
  Company Number: None

PATIENT
  Age: 45 Year
  Sex: Female
  Weight: 72.5755 kg

DRUGS (1)
  1. DEXILANT [Suspect]
     Indication: GASTRITIS
     Dosage: 60MG OD ORALLY
     Route: 048
     Dates: start: 20100501, end: 20110201

REACTIONS (2)
  - ABASIA [None]
  - PAIN [None]
